FAERS Safety Report 21266988 (Version 2)
Quarter: 2022Q3

REPORT INFORMATION
  Report Type: Report from Study
  Country: CA (occurrence: CA)
  Receive Date: 20220829
  Receipt Date: 20220927
  Transmission Date: 20221026
  Serious: Yes (Other)
  Sender: FDA-Public Use
  Company Number: CA-AMGEN-CANSL2022144051

PATIENT
  Age: 70 Year
  Sex: Female

DRUGS (3)
  1. AVSOLA [Suspect]
     Active Substance: INFLIXIMAB-AXXQ
     Indication: Crohn^s disease
     Dosage: 5 MILLIGRAM/KILOGRAM, Q8WK
     Route: 042
     Dates: start: 20220310
  2. AVSOLA [Suspect]
     Active Substance: INFLIXIMAB-AXXQ
     Dosage: 5 MILLIGRAM/KILOGRAM, Q6WK
     Route: 042
     Dates: start: 2022
  3. AVSOLA [Suspect]
     Active Substance: INFLIXIMAB-AXXQ
     Dosage: 5 MILLIGRAM/KILOGRAM, Q6WK
     Route: 065

REACTIONS (5)
  - Clostridium difficile infection [Unknown]
  - Off label use [Unknown]
  - Headache [Unknown]
  - Nasal congestion [Unknown]
  - Vomiting [Unknown]

NARRATIVE: CASE EVENT DATE: 20220101
